FAERS Safety Report 9477111 (Version 1)
Quarter: 2013Q3

REPORT INFORMATION
  Report Type: Spontaneous
  Country: US (occurrence: US)
  Receive Date: 20130826
  Receipt Date: 20130826
  Transmission Date: 20140515
  Serious: No
  Sender: FDA-Public Use
  Company Number: US-PFIZER INC-2013245656

PATIENT
  Age: 96 Year
  Sex: Female

DRUGS (3)
  1. LYRICA [Suspect]
     Indication: HERPES ZOSTER
     Dosage: UNK
     Dates: start: 2013
  2. LYRICA [Suspect]
     Indication: PAIN
  3. TYLENOL [Suspect]
     Indication: PAIN
     Dosage: UNK

REACTIONS (8)
  - Hypersomnia [Unknown]
  - Somnolence [Unknown]
  - Hallucination [Unknown]
  - Hypoaesthesia [Unknown]
  - Gait disturbance [Unknown]
  - Limb discomfort [Unknown]
  - Thinking abnormal [Unknown]
  - Drug ineffective [Unknown]
